FAERS Safety Report 4933890-4 (Version None)
Quarter: 2006Q1

REPORT INFORMATION
  Report Type: 
  Country: None (occurrence: None)
  Receive Date: 20060307
  Receipt Date: 20050809
  Transmission Date: 20060701
  Serious: Yes (Hospitalization)
  Sender: FDA-Public Use
  Company Number: FR-JNJFOC-20050602932

PATIENT
  Age: 50 Year
  Sex: Female
  Weight: 85 kg

DRUGS (10)
  1. REMICADE [Suspect]
     Dosage: 3MG/KG
     Route: 042
  2. REMICADE [Suspect]
     Dosage: 3MG/KG
     Route: 042
  3. REMICADE [Suspect]
     Dosage: 3MG/KG
     Route: 042
  4. REMICADE [Suspect]
     Indication: ANKYLOSING SPONDYLITIS
     Dosage: 3MG/KG
     Route: 042
  5. CORTANCYL [Concomitant]
     Indication: ANKYLOSING SPONDYLITIS
  6. MOPRAL 20 [Concomitant]
  7. LAMALINE [Concomitant]
  8. LAMALINE [Concomitant]
  9. LAMALINE [Concomitant]
  10. LAMALINE [Concomitant]
     Indication: PAIN

REACTIONS (1)
  - PULMONARY TUBERCULOSIS [None]
